FAERS Safety Report 15347108 (Version 1)
Quarter: 2018Q3

REPORT INFORMATION
  Report Type: Spontaneous
  Country: US (occurrence: US)
  Receive Date: 20180828
  Receipt Date: 20180828
  Transmission Date: 20181010
  Serious: Yes (Hospitalization)
  Sender: FDA-Public Use
  Company Number: None

PATIENT
  Age: 58 Year
  Sex: Male
  Weight: 135.13 kg

DRUGS (3)
  1. LASIX [Concomitant]
     Active Substance: FUROSEMIDE
  2. LENALIDOMIDE [Suspect]
     Active Substance: LENALIDOMIDE
     Indication: PLASMA CELL MYELOMA
     Dates: start: 20171026, end: 20180418
  3. DEXAMETHASONE. [Concomitant]
     Active Substance: DEXAMETHASONE

REACTIONS (9)
  - Oedema peripheral [None]
  - Chills [None]
  - Proctalgia [None]
  - Pyrexia [None]
  - Bone lesion [None]
  - Malignant joint neoplasm [None]
  - Pelvic mass [None]
  - Condition aggravated [None]
  - Gait inability [None]

NARRATIVE: CASE EVENT DATE: 20180418
